FAERS Safety Report 5386197-8 (Version None)
Quarter: 2007Q3

REPORT INFORMATION
  Report Type: 
  Country: None (occurrence: None)
  Receive Date: 20070710
  Receipt Date: 20070710
  Transmission Date: 20080115
  Serious: Yes (Life-Threatening, Hospitalization)
  Sender: FDA-Public Use
  Company Number: None

PATIENT
  Age: 62 Year
  Sex: Male
  Weight: 80.5 kg

DRUGS (1)
  1. LAMICTAL [Suspect]
     Indication: NEUROPATHY
     Dosage: 25MG BID FOR 2 WKS PO, 50MG BID FOR 2 WKS PO
     Route: 048
     Dates: start: 20070615, end: 20070629

REACTIONS (1)
  - STEVENS-JOHNSON SYNDROME [None]
